FAERS Safety Report 23219894 (Version 3)
Quarter: 2024Q1

REPORT INFORMATION
  Report Type: Spontaneous
  Country: GB (occurrence: GB)
  Receive Date: 20231122
  Receipt Date: 20240125
  Transmission Date: 20240409
  Serious: Yes (Hospitalization, Other)
  Sender: FDA-Public Use
  Company Number: GB-SA-SAC20231106001075

PATIENT
  Age: 89 Year
  Sex: Male

DRUGS (12)
  1. SUTIMLIMAB [Suspect]
     Active Substance: SUTIMLIMAB
     Indication: Cold type haemolytic anaemia
     Dosage: 6.5 G
     Route: 042
  2. FUROSEMIDE [Concomitant]
     Active Substance: FUROSEMIDE
     Dosage: 40MG ONCE A DAY
  3. CLARITHROMYCIN [Concomitant]
     Active Substance: CLARITHROMYCIN
  4. APIXABAN [Concomitant]
     Active Substance: APIXABAN
     Indication: Atrial fibrillation
     Dosage: 2.5MG BD
  5. ASPIRIN [Concomitant]
     Active Substance: ASPIRIN
     Indication: Coronary artery disease
     Dosage: 75MG QD
  6. ASPIRIN [Concomitant]
     Active Substance: ASPIRIN
     Indication: Stent placement
  7. ATORVASTATIN [Concomitant]
     Active Substance: ATORVASTATIN
     Indication: Blood cholesterol increased
     Dosage: 80MG
  8. FOLIC ACID [Concomitant]
     Active Substance: FOLIC ACID
     Indication: Anaemia
     Dosage: 5MG QD
  9. LANSOPRAZOLE [Concomitant]
     Active Substance: LANSOPRAZOLE
     Dosage: 30MGOD
  10. MIRABEGRON [Concomitant]
     Active Substance: MIRABEGRON
     Indication: Lower urinary tract symptoms
     Dosage: 50MG OD
  11. TAMSULOSIN [Concomitant]
     Active Substance: TAMSULOSIN
     Indication: Lower urinary tract symptoms
     Dosage: 400MCG OD
  12. ISOSORBIDE MONONITRATE [Concomitant]
     Active Substance: ISOSORBIDE MONONITRATE
     Indication: Angina pectoris
     Dosage: 60MG OD

REACTIONS (9)
  - Lower respiratory tract infection [Unknown]
  - Pleural effusion [Unknown]
  - Pneumonia [Unknown]
  - Dyspnoea [Unknown]
  - Wheezing [Unknown]
  - Hypervolaemia [Unknown]
  - Oxygen saturation decreased [Unknown]
  - Cardiomegaly [Unknown]
  - Peripheral swelling [Unknown]

NARRATIVE: CASE EVENT DATE: 20230201
